FAERS Safety Report 8138610-0 (Version None)
Quarter: 2012Q1

REPORT INFORMATION
  Report Type: 
  Country: None (occurrence: None)
  Receive Date: 20120213
  Receipt Date: 20120203
  Transmission Date: 20120608
  Serious: Yes (Other)
  Sender: FDA-Public Use
  Company Number: DSJ-2012-02184

PATIENT
  Age: 82 Year
  Sex: Female

DRUGS (5)
  1. FORMOTEROL/BUDESONIDE (BUDESONIDE, FORMOTEROL) (BUDESONIDE, FORMOTEROL [Concomitant]
  2. LEVOTHYROXINE SODIUM [Concomitant]
  3. BENICAR [Suspect]
     Indication: HYPERTENSION
     Dosage: 40 MG (40 MG, 1 IN 1 D), PER ORAL 20 MG (20 MG, 1 IN 1 D), PER ORAL
     Route: 048
     Dates: start: 20111201, end: 20111201
  4. BENICAR [Suspect]
     Indication: HYPERTENSION
     Dosage: 40 MG (40 MG, 1 IN 1 D), PER ORAL 20 MG (20 MG, 1 IN 1 D), PER ORAL
     Route: 048
     Dates: start: 20111201
  5. ROSUVASTATIN [Concomitant]

REACTIONS (2)
  - HYPOTENSION [None]
  - SOMNOLENCE [None]
